FAERS Safety Report 5407566-3 (Version None)
Quarter: 2007Q3

REPORT INFORMATION
  Report Type: 
  Country: None (occurrence: None)
  Receive Date: 20070713
  Receipt Date: 20070427
  Transmission Date: 20080115
  Serious: No
  Sender: FDA-Public Use
  Company Number: 2007SP001554

PATIENT
  Age: 32 Year
  Sex: Female
  Weight: 69.4003 kg

DRUGS (6)
  1. LUNESTA [Suspect]
     Indication: INSOMNIA
     Dosage: 3 MG; ORAL
     Route: 048
     Dates: start: 20070426
  2. AMBIEN [Concomitant]
  3. ESTRATEST [Concomitant]
  4. PROZAC [Concomitant]
  5. ATIVAN [Concomitant]
  6. TUMS [Concomitant]

REACTIONS (2)
  - DYSGEUSIA [None]
  - INSOMNIA [None]
